FAERS Safety Report 12388530 (Version 1)
Quarter: 2016Q2

REPORT INFORMATION
  Report Type: Spontaneous
  Country: DE (occurrence: DE)
  Receive Date: 20160520
  Receipt Date: 20160520
  Transmission Date: 20160815
  Serious: Yes (Other)
  Sender: FDA-Public Use
  Company Number: DE-SUN PHARMACEUTICAL INDUSTRIES LTD-2016RR-116888

PATIENT
  Age: 50 Year

DRUGS (4)
  1. OLANZAPINE. [Suspect]
     Active Substance: OLANZAPINE
     Indication: MANIA
     Dosage: 25 MG, DAILY
     Route: 065
     Dates: start: 20130723
  2. OLANZAPINE. [Suspect]
     Active Substance: OLANZAPINE
     Indication: MANIA
     Dosage: 20 MG, DAILY
     Route: 065
  3. PROTHIPHENDYL [Concomitant]
     Indication: INSOMNIA
     Dosage: 80 MG, DAILY
     Route: 065
  4. LEVOTHYROXIN [Concomitant]
     Active Substance: LEVOTHYROXINE
     Indication: HYPOTHYROIDISM
     Dosage: 50 ?G, DAILY
     Route: 065

REACTIONS (1)
  - Somnambulism [Recovered/Resolved]

NARRATIVE: CASE EVENT DATE: 20130725
